FAERS Safety Report 17760026 (Version 3)
Quarter: 2020Q4

REPORT INFORMATION
  Report Type: Spontaneous
  Country: US (occurrence: US)
  Receive Date: 20200508
  Receipt Date: 20201006
  Transmission Date: 20210113
  Serious: Yes (Other)
  Sender: FDA-Public Use
  Company Number: US-GILEAD-2020-0465010

PATIENT
  Sex: Male

DRUGS (4)
  1. ATRIPLA [Suspect]
     Active Substance: EFAVIRENZ\EMTRICITABINE\TENOFOVIR DISOPROXIL FUMARATE
     Indication: HIV INFECTION
     Dosage: UNK
     Route: 048
     Dates: start: 201106, end: 201406
  2. VITAMINS NOS [Concomitant]
     Active Substance: VITAMINS
     Indication: TOOTH LOSS
     Dosage: UNK
     Dates: start: 2014
  3. CALCIUM AND VITAMIN D [Concomitant]
     Active Substance: CALCIUM\VITAMIN D
     Indication: FRACTURE
  4. CALCIUM AND VITAMIN D [Concomitant]
     Active Substance: CALCIUM\VITAMIN D
     Indication: BONE DENSITY DECREASED
     Dosage: UNK

REACTIONS (3)
  - Fracture [Unknown]
  - Tooth loss [Unknown]
  - Bone density decreased [Unknown]

NARRATIVE: CASE EVENT DATE: 2014
